FAERS Safety Report 5257383-2 (Version None)
Quarter: 2007Q1

REPORT INFORMATION
  Report Type: 
  Country: None (occurrence: None)
  Receive Date: 20070307
  Receipt Date: 20070302
  Transmission Date: 20070707
  Serious: Yes (Hospitalization)
  Sender: FDA-Public Use
  Company Number: HU-BRISTOL-MYERS SQUIBB COMPANY-13698683

PATIENT
  Age: 68 Year
  Sex: Female

DRUGS (8)
  1. CISPLATIN [Suspect]
     Indication: METASTATIC GASTRIC CANCER
     Route: 042
     Dates: start: 20070209, end: 20070209
  2. FLUOROURACIL [Suspect]
     Indication: METASTATIC GASTRIC CANCER
     Route: 042
     Dates: start: 20070209, end: 20070214
  3. MEGACE [Suspect]
     Indication: ANOREXIA
     Route: 048
     Dates: start: 20070101
  4. NORMODIPINE [Concomitant]
     Indication: HYPERTENSION
     Route: 048
     Dates: start: 19870101
  5. BETALOC [Concomitant]
     Indication: HYPERTENSION
     Route: 048
     Dates: start: 19870101
  6. GLIBENCLAMIDE [Concomitant]
     Indication: DIABETES MELLITUS
     Route: 048
     Dates: start: 19970101
  7. ISOSOURCE [Concomitant]
     Indication: ANOREXIA
     Route: 048
     Dates: start: 20070101
  8. FAMOTIDINE [Concomitant]
     Indication: DYSPEPSIA
     Route: 048
     Dates: start: 20040101

REACTIONS (3)
  - ANAEMIA [None]
  - ASTHENIA [None]
  - HYPERGLYCAEMIA [None]
